FAERS Safety Report 9401227 (Version 1)
Quarter: 2013Q3

REPORT INFORMATION
  Report Type: Spontaneous
  Country: US (occurrence: US)
  Receive Date: 20130715
  Receipt Date: 20130715
  Transmission Date: 20140515
  Serious: Yes (Hospitalization)
  Sender: FDA-Public Use
  Company Number: US-GILEAD-2013-0077680

PATIENT
  Age: 74 Year
  Sex: Female

DRUGS (3)
  1. LETAIRIS [Suspect]
     Indication: PULMONARY ARTERIAL HYPERTENSION
     Dosage: 5 MG, UNK
     Route: 048
     Dates: start: 20130604
  2. ADCIRCA [Concomitant]
  3. SPIRIVA [Concomitant]

REACTIONS (8)
  - Pulmonary oedema [Recovering/Resolving]
  - Hypoxia [Recovering/Resolving]
  - Pulmonary hypertension [Unknown]
  - Dyspnoea [Unknown]
  - Fluid retention [Unknown]
  - Anaemia [Unknown]
  - Cardiac failure congestive [Recovering/Resolving]
  - Oedema peripheral [Recovered/Resolved]
